FAERS Safety Report 4652440-3 (Version None)
Quarter: 2005Q2

REPORT INFORMATION
  Report Type: 
  Country: None (occurrence: None)
  Receive Date: 20050502
  Receipt Date: 20050421
  Transmission Date: 20051028
  Serious: Yes (Hospitalization, Other)
  Sender: FDA-Public Use
  Company Number: 2005-04-1480

PATIENT
  Age: 39 Year
  Sex: Female

DRUGS (2)
  1. TEMODAR [Suspect]
     Indication: EPENDYMOMA
     Dosage: 75 MG ORAL
     Route: 048
     Dates: start: 20050321, end: 20050408
  2. RADIATION THERAPY [Concomitant]

REACTIONS (4)
  - APLASTIC ANAEMIA [None]
  - NO THERAPEUTIC RESPONSE [None]
  - PLATELET COUNT DECREASED [None]
  - VAGINAL HAEMORRHAGE [None]
